FAERS Safety Report 21695173 (Version 1)
Quarter: 2022Q4

REPORT INFORMATION
  Report Type: Spontaneous
  Country: US (occurrence: US)
  Receive Date: 20221207
  Receipt Date: 20221207
  Transmission Date: 20230112
  Serious: No
  Sender: FDA-Public Use
  Company Number: US-ALLERGAN-2136448US

PATIENT
  Sex: Female

DRUGS (1)
  1. LO LOESTRIN FE [Suspect]
     Active Substance: ETHINYL ESTRADIOL\NORETHINDRONE ACETATE
     Indication: Menstrual disorder
     Dosage: UNK

REACTIONS (6)
  - Weight increased [Unknown]
  - Insomnia [Unknown]
  - Abdominal distension [Unknown]
  - Abdominal pain [Unknown]
  - Off label use [Unknown]
  - Acne [Unknown]
